FAERS Safety Report 8036516-9 (Version None)
Quarter: 2012Q1

REPORT INFORMATION
  Report Type: 
  Country: None (occurrence: None)
  Receive Date: 20120109
  Receipt Date: 20111224
  Transmission Date: 20120608
  Serious: Yes (Life-Threatening, Other)
  Sender: FDA-Public Use
  Company Number: 2011SP059691

PATIENT
  Age: 40 Year
  Sex: Male
  Weight: 66 kg

DRUGS (11)
  1. CHLORPROMAZINE HCL [Concomitant]
  2. MAGNESIUM SULFATE [Concomitant]
  3. ASENAPINE (ASENAPINE /05706901/) [Suspect]
     Indication: SCHIZOPHRENIA
     Dosage: 5 MG;BID;SL
     Route: 060
     Dates: start: 20111216, end: 20111224
  4. SILECE [Concomitant]
  5. GASCON [Concomitant]
  6. RISPERDAL CONSTA [Concomitant]
  7. SEROQUEL [Concomitant]
  8. GASMOTIN [Concomitant]
  9. CEROCRAL [Concomitant]
  10. SENNOSIDE [Concomitant]
  11. MIYA-BM [Concomitant]

REACTIONS (18)
  - VOMITING [None]
  - BLOOD PRESSURE INCREASED [None]
  - PALLOR [None]
  - IRRITABILITY [None]
  - BLOOD CHLORIDE DECREASED [None]
  - SNORING [None]
  - ASPHYXIA [None]
  - CARDIO-RESPIRATORY ARREST [None]
  - HAEMATURIA [None]
  - BLOOD POTASSIUM DECREASED [None]
  - POLYDIPSIA [None]
  - ALTERED STATE OF CONSCIOUSNESS [None]
  - POSTRESUSCITATION ENCEPHALOPATHY [None]
  - AREFLEXIA [None]
  - CYANOSIS [None]
  - PNEUMONIA ASPIRATION [None]
  - BODY TEMPERATURE DECREASED [None]
  - HYPONATRAEMIA [None]
